FAERS Safety Report 8279161-2 (Version None)
Quarter: 2012Q2

REPORT INFORMATION
  Report Type: 
  Country: None (occurrence: None)
  Receive Date: 20120412
  Receipt Date: 20110819
  Transmission Date: 20120825
  Serious: No
  Sender: FDA-Public Use
  Company Number: US-ASTRAZENECA-2011SE49921

PATIENT
  Sex: Female

DRUGS (3)
  1. NEXIUM [Suspect]
     Route: 048
  2. SIPRO [Concomitant]
  3. ANTIBIOTICS [Concomitant]

REACTIONS (3)
  - THROAT IRRITATION [None]
  - DIZZINESS [None]
  - HEADACHE [None]
